FAERS Safety Report 6161016-0 (Version None)
Quarter: 2009Q2

REPORT INFORMATION
  Report Type: 
  Country: None (occurrence: None)
  Receive Date: 20090420
  Receipt Date: 20090408
  Transmission Date: 20091009
  Serious: No
  Sender: FDA-Public Use
  Company Number: CZ-PFIZER INC-2009194931

PATIENT

DRUGS (8)
  1. DOSTINEX [Suspect]
     Dosage: UNK
     Route: 048
  2. ESTRADIOL HEMIHYDRATE [Interacting]
  3. NORETHISTERONE [Interacting]
  4. LOKREN [Concomitant]
     Dosage: UNK
     Route: 048
  5. SECATOXIN [Concomitant]
     Dosage: UNK
     Route: 048
  6. PENTOMER [Concomitant]
     Dosage: UNK
     Route: 048
  7. LETROX [Concomitant]
     Dosage: UNK
     Route: 048
  8. VASILIP [Concomitant]
     Dosage: UNK
     Route: 048

REACTIONS (3)
  - DRUG INTERACTION [None]
  - HEADACHE [None]
  - PHOTOPSIA [None]
